FAERS Safety Report 9959321 (Version 3)
Quarter: 2014Q1

REPORT INFORMATION
  Report Type: Spontaneous
  Country: US (occurrence: None)
  Receive Date: 20140227
  Receipt Date: 20140326
  Transmission Date: 20141002
  Serious: Yes (Hospitalization)
  Sender: FDA-Public Use
  Company Number: UTC-044168

PATIENT
  Age: 29 Year
  Sex: Female
  Weight: 69.5 kg

DRUGS (3)
  1. REMODULIN [Suspect]
     Indication: COR PULMONALE CHRONIC
     Dosage: 37.44 UG/KG (0.026 UG/KG, 1 IN 1 MIN), SUBCUTANEOUS
     Route: 058
     Dates: start: 20131114
  2. SILDENAFIL [Concomitant]
  3. SILDENAFIL (SILDENAFIL) [Concomitant]

REACTIONS (4)
  - Pneumonia [None]
  - Blood potassium decreased [None]
  - Local swelling [None]
  - Cardiac failure acute [None]
